FAERS Safety Report 18087155 (Version 1)
Quarter: 2020Q3

REPORT INFORMATION
  Report Type: Spontaneous
  Country: US (occurrence: US)
  Receive Date: 20200729
  Receipt Date: 20200729
  Transmission Date: 20201103
  Serious: Yes (Other)
  Sender: FDA-Public Use
  Company Number: US-SA-2020SA196267

PATIENT

DRUGS (1)
  1. DUPIXENT [Suspect]
     Active Substance: DUPILUMAB
     Indication: ASTHMA
     Dosage: 200 MG, QOW
     Route: 058
     Dates: start: 20200624

REACTIONS (6)
  - Cough [Unknown]
  - Nasal discomfort [Unknown]
  - Terminal insomnia [Unknown]
  - Throat irritation [Unknown]
  - Pulmonary oedema [Unknown]
  - Oral herpes [Unknown]

NARRATIVE: CASE EVENT DATE: 20200725
